FAERS Safety Report 4646458-4 (Version None)
Quarter: 2005Q2

REPORT INFORMATION
  Report Type: 
  Country: None (occurrence: None)
  Receive Date: 20050427
  Receipt Date: 20040317
  Transmission Date: 20051028
  Serious: No
  Sender: FDA-Public Use
  Company Number: US-GLAXOSMITHKLINE-A0503219A

PATIENT
  Age: 53 Year
  Sex: Female

DRUGS (7)
  1. FLOVENT [Suspect]
     Indication: ASTHMA
     Dosage: 2PUFF TWICE PER DAY
     Route: 055
     Dates: start: 20040205, end: 20040401
  2. CARDIZEM CD [Concomitant]
     Route: 065
  3. DARVOCET [Concomitant]
     Route: 065
  4. DIAZEPAM [Concomitant]
     Route: 065
  5. MYLANTIN [Concomitant]
     Route: 065
  6. ALBUTEROL [Concomitant]
  7. PREDNISONE [Concomitant]

REACTIONS (14)
  - ABDOMINAL PAIN [None]
  - ARTHRALGIA [None]
  - BONE PAIN [None]
  - DENTAL CARIES [None]
  - ELECTRIC SHOCK [None]
  - FATIGUE [None]
  - GINGIVAL BLEEDING [None]
  - HEADACHE [None]
  - MYALGIA [None]
  - OSTEOARTHRITIS [None]
  - PAIN [None]
  - PARAESTHESIA [None]
  - SINUS HEADACHE [None]
  - TOOTHACHE [None]
